FAERS Safety Report 17128968 (Version 1)
Quarter: 2019Q4

REPORT INFORMATION
  Report Type: Spontaneous
  Country: US (occurrence: US)
  Receive Date: 20191207
  Receipt Date: 20191207
  Transmission Date: 20200122
  Serious: No
  Sender: FDA-Public Use
  Company Number: None

PATIENT
  Age: 46 Year
  Sex: Female
  Weight: 56.25 kg

DRUGS (1)
  1. CLONAZEPAM 0.5MG TABLETS [Suspect]
     Active Substance: CLONAZEPAM
     Indication: VESTIBULAR MIGRAINE
     Dosage: ?          QUANTITY:1 TABLET(S);?
     Route: 048
     Dates: start: 20140501, end: 20190815

REACTIONS (3)
  - Anxiety [None]
  - Panic reaction [None]
  - Drug withdrawal syndrome [None]

NARRATIVE: CASE EVENT DATE: 20190816
